FAERS Safety Report 10551136 (Version 1)
Quarter: 2014Q4

REPORT INFORMATION
  Report Type: Spontaneous
  Country: US (occurrence: None)
  Receive Date: 20141028
  Receipt Date: 20141028
  Transmission Date: 20150529
  Serious: Yes (Life-Threatening, Disabling)
  Sender: FDA-Public Use
  Company Number: None

PATIENT
  Age: 26 Year
  Sex: Female
  Weight: 52.16 kg

DRUGS (1)
  1. IMPLANON [Suspect]
     Active Substance: ETONOGESTREL
     Indication: CONTRACEPTION

REACTIONS (10)
  - Urticaria [None]
  - Blood pressure increased [None]
  - Decreased activity [None]
  - Visual impairment [None]
  - Nausea [None]
  - Mood swings [None]
  - Headache [None]
  - Migraine [None]
  - Pruritus generalised [None]
  - Hallucination [None]

NARRATIVE: CASE EVENT DATE: 20141023
